FAERS Safety Report 21649120 (Version 1)
Quarter: 2022Q4

REPORT INFORMATION
  Report Type: Report from Study
  Country: US (occurrence: US)
  Receive Date: 20221128
  Receipt Date: 20221128
  Transmission Date: 20230112
  Serious: No
  Sender: FDA-Public Use
  Company Number: US-ABBVIE-4174622

PATIENT
  Age: 57 Year
  Sex: Female

DRUGS (4)
  1. RINVOQ [Suspect]
     Active Substance: UPADACITINIB
     Indication: Rheumatoid arthritis
     Route: 048
  2. Pfizer/BioNTech [Concomitant]
     Indication: COVID-19 immunisation
     Route: 030
     Dates: start: 20211021, end: 20211021
  3. Pfizer/BioNTech [Concomitant]
     Indication: COVID-19 immunisation
     Route: 030
     Dates: start: 20210107, end: 20210107
  4. Pfizer/BioNTech [Concomitant]
     Indication: COVID-19 immunisation
     Route: 030
     Dates: start: 20210128, end: 20210128

REACTIONS (1)
  - COVID-19 [Recovered/Resolved]

NARRATIVE: CASE EVENT DATE: 20220101
